FAERS Safety Report 6541658-0 (Version None)
Quarter: 2010Q1

REPORT INFORMATION
  Report Type: 
  Country: None (occurrence: None)
  Receive Date: 20100119
  Receipt Date: 20100112
  Transmission Date: 20100710
  Serious: Yes (Life-Threatening, Hospitalization)
  Sender: FDA-Public Use
  Company Number: FR-JNJFOC-20081006713

PATIENT
  Age: 51 Year
  Sex: Female

DRUGS (3)
  1. REMICADE [Suspect]
     Indication: RHEUMATOID ARTHRITIS
     Dosage: 4 INFUSIONS
     Route: 042
  2. METHOTREXATE [Concomitant]
  3. CORTICOSTEROIDS [Concomitant]

REACTIONS (7)
  - ACUTE LUNG INJURY [None]
  - DISTURBANCE IN ATTENTION [None]
  - MALARIA [None]
  - MULTI-ORGAN DISORDER [None]
  - SHOCK [None]
  - TRANSFUSION-RELATED ACUTE LUNG INJURY [None]
  - WEIGHT DECREASED [None]
